FAERS Safety Report 22385383 (Version 2)
Quarter: 2023Q2

REPORT INFORMATION
  Report Type: Spontaneous
  Country: BR (occurrence: BR)
  Receive Date: 20230530
  Receipt Date: 20230531
  Transmission Date: 20230722
  Serious: Yes (Other)
  Sender: FDA-Public Use
  Company Number: BR-BAYER-2023A071811

PATIENT
  Sex: Female

DRUGS (2)
  1. MIRENA [Suspect]
     Active Substance: LEVONORGESTREL
     Dosage: 20?G/DAY
     Route: 015
  2. ESCITALOPRAM [Concomitant]
     Active Substance: ESCITALOPRAM OXALATE

REACTIONS (11)
  - Device breakage [None]
  - Anxiety [None]
  - Palpitations [None]
  - Premature menopause [None]
  - Amenorrhoea [None]
  - Abdominal pain [None]
  - Mood swings [None]
  - Nervousness [None]
  - Stress [None]
  - Feeling hot [None]
  - Dizziness [None]
